FAERS Safety Report 5351282-3 (Version None)
Quarter: 2007Q2

REPORT INFORMATION
  Report Type: 
  Country: None (occurrence: None)
  Receive Date: 20070608
  Receipt Date: 20070525
  Transmission Date: 20071010
  Serious: Yes (Other)
  Sender: FDA-Public Use
  Company Number: GR-PFIZER INC-2007044258

PATIENT
  Sex: Male

DRUGS (1)
  1. EPIRUBICIN HYDROCHLORIDE [Suspect]
     Indication: BLADDER CANCER
     Route: 042

REACTIONS (2)
  - EOSINOPHILIA [None]
  - LEUKOCYTOSIS [None]
